FAERS Safety Report 16204101 (Version 1)
Quarter: 2019Q2

REPORT INFORMATION
  Report Type: Spontaneous
  Country: US (occurrence: US)
  Receive Date: 20190416
  Receipt Date: 20190416
  Transmission Date: 20190711
  Serious: No
  Sender: FDA-Public Use
  Company Number: US-RISING PHARMACEUTICALS, INC.-2019RIS00151

PATIENT
  Weight: 87.53 kg

DRUGS (1)
  1. ZILEUTON. [Suspect]
     Active Substance: ZILEUTON

REACTIONS (2)
  - Headache [Unknown]
  - Hypersensitivity [Unknown]
